FAERS Safety Report 9788240 (Version 3)
Quarter: 2014Q1

REPORT INFORMATION
  Report Type: Report from Study
  Country: US (occurrence: US)
  Receive Date: 20131230
  Receipt Date: 20140212
  Transmission Date: 20141002
  Serious: Yes (Other)
  Sender: FDA-Public Use
  Company Number: US-JNJFOC-20131016398

PATIENT
  Age: 72 Year
  Sex: Female

DRUGS (8)
  1. REMICADE [Suspect]
     Indication: COLITIS ULCERATIVE
     Route: 042
     Dates: start: 20130717, end: 20131024
  2. REMICADE [Suspect]
     Indication: COLITIS ULCERATIVE
     Route: 042
     Dates: start: 20131024
  3. AZATHIOPRINE [Concomitant]
     Indication: COLITIS ULCERATIVE
     Route: 048
     Dates: start: 20120101
  4. PROBIOTIC [Concomitant]
     Route: 065
  5. CENTRUM SILVER MULTIVITAMINS [Concomitant]
     Route: 065
  6. CALTRATE + D [Concomitant]
     Route: 065
  7. CLOBETASOL [Concomitant]
     Indication: PSORIASIS
     Dosage: FOR YEARS.
     Route: 065
  8. IMURAN [Concomitant]
     Route: 065
     Dates: start: 201307

REACTIONS (5)
  - Salivary gland cyst [Not Recovered/Not Resolved]
  - Weight increased [Not Recovered/Not Resolved]
  - Condition aggravated [Not Recovered/Not Resolved]
  - Faeces soft [Recovering/Resolving]
  - Drug ineffective [Unknown]
